FAERS Safety Report 9690305 (Version 1)
Quarter: 2013Q4

REPORT INFORMATION
  Report Type: Report from Study
  Country: IN (occurrence: IN)
  Receive Date: 20131115
  Receipt Date: 20131115
  Transmission Date: 20140711
  Serious: Yes (Death)
  Sender: FDA-Public Use
  Company Number: IN-SA-2013SA114453

PATIENT
  Age: 55 Year
  Sex: Female

DRUGS (1)
  1. TAXOTERE [Suspect]
     Indication: BREAST CANCER
     Route: 042
     Dates: start: 20131002, end: 20131023

REACTIONS (1)
  - Asthenia [Fatal]
